FAERS Safety Report 8575169-8 (Version None)
Quarter: 2012Q3

REPORT INFORMATION
  Report Type: 
  Country: None (occurrence: None)
  Receive Date: 20120807
  Receipt Date: 20120726
  Transmission Date: 20120928
  Serious: Yes (Other)
  Sender: FDA-Public Use
  Company Number: US-009507513-1207USA011255

PATIENT

DRUGS (6)
  1. FOSAMAX [Suspect]
     Indication: OSTEOPOROSIS
     Dosage: UNK
     Route: 048
     Dates: start: 19960101, end: 20030401
  2. FOSAMAX [Suspect]
     Indication: OSTEOPENIA
  3. BONIVA [Suspect]
     Indication: OSTEOPENIA
  4. BONIVA [Suspect]
     Indication: OSTEOPOROSIS
     Dosage: UNK
     Dates: start: 20051201, end: 20111101
  5. ACTONEL [Suspect]
     Indication: OSTEOPOROSIS
     Dosage: UNK
     Dates: start: 20030401, end: 20051201
  6. ACTONEL [Suspect]
     Indication: OSTEOPENIA

REACTIONS (2)
  - LOW TURNOVER OSTEOPATHY [None]
  - FEMUR FRACTURE [None]
